FAERS Safety Report 24372431 (Version 1)
Quarter: 2024Q3

REPORT INFORMATION
  Report Type: Spontaneous
  Country: CH (occurrence: CH)
  Receive Date: 20240927
  Receipt Date: 20240927
  Transmission Date: 20241016
  Serious: Yes (Other)
  Sender: RANBAXY
  Company Number: CH-SUN PHARMACEUTICAL INDUSTRIES LTD-2024R1-469992

PATIENT
  Age: 63 Year
  Sex: Male

DRUGS (2)
  1. PREDNISONE [Suspect]
     Active Substance: PREDNISONE
     Indication: Graft versus host disease in skin
     Dosage: 1 MILLIGRAM/KILOGRAM, DAILY
     Route: 065
  2. TACROLIMUS [Suspect]
     Active Substance: TACROLIMUS
     Indication: Graft versus host disease in skin
     Dosage: UNK
     Route: 065

REACTIONS (1)
  - Cytomegalovirus colitis [Unknown]
